FAERS Safety Report 5568310-2 (Version None)
Quarter: 2007Q4

REPORT INFORMATION
  Report Type: 
  Country: None (occurrence: None)
  Receive Date: 20071220
  Receipt Date: 20071206
  Transmission Date: 20080405
  Serious: Yes (Other)
  Sender: FDA-Public Use
  Company Number: GB-AMGEN-US255130

PATIENT
  Sex: Male
  Weight: 89.4 kg

DRUGS (10)
  1. ENBREL [Suspect]
     Indication: PSORIATIC ARTHROPATHY
     Route: 058
     Dates: start: 20071029, end: 20071105
  2. LANSOPRAZOLE [Concomitant]
     Indication: DYSPEPSIA
     Route: 048
  3. KETOTIFEN FUMARATE [Concomitant]
     Indication: PRURITUS
     Route: 048
  4. PARAFFIN, LIQUID/WOOL ALCOHOLS [Concomitant]
     Indication: PSORIASIS
     Route: 065
  5. CAPASAL [Concomitant]
     Indication: PSORIASIS
     Dosage: UNKNOWN
     Route: 065
  6. LOCOID [Concomitant]
     Indication: PSORIASIS
     Dosage: UNKNOWN
     Route: 065
  7. BETNOVATE [Concomitant]
     Indication: PSORIASIS
     Dosage: UNKNOWN
     Route: 065
  8. CO-CODAMOL [Concomitant]
     Indication: ARTHRITIS
     Dosage: 30/500 MG 2 TABLETS NOCTE
     Route: 048
  9. RAMIPRIL [Concomitant]
     Indication: HYPERTENSION
     Route: 048
  10. CETOMACROGOL/CETOSTEARYL ALCOHOL/PARAFFIN, LIQUID/WHITE SOFT PARAFFIN [Concomitant]
     Indication: PSORIASIS
     Dosage: UNKNOWN
     Route: 065

REACTIONS (11)
  - CHEST PAIN [None]
  - CHILLS [None]
  - DIARRHOEA [None]
  - EYE PAIN [None]
  - HYPERSENSITIVITY [None]
  - INSOMNIA [None]
  - LACRIMATION INCREASED [None]
  - MALAISE [None]
  - NAUSEA [None]
  - PRURITUS GENERALISED [None]
  - VOMITING [None]
